FAERS Safety Report 24288695 (Version 2)
Quarter: 2024Q3

REPORT INFORMATION
  Report Type: Spontaneous
  Country: CA (occurrence: CA)
  Receive Date: 20240906
  Receipt Date: 20240912
  Transmission Date: 20241016
  Serious: Yes (Other)
  Sender: SANDOZ
  Company Number: CA-SANDOZ-SDZ2024CA078060

PATIENT
  Age: 75 Year
  Sex: Male

DRUGS (2)
  1. TELMISARTAN [Suspect]
     Active Substance: TELMISARTAN
     Indication: Hypertension
     Dosage: 40 MG, QD
     Route: 048
  2. TELMISARTAN [Suspect]
     Active Substance: TELMISARTAN
     Dosage: 40 MG, QD
     Route: 048

REACTIONS (1)
  - Abdominal discomfort [Recovered/Resolved]
